FAERS Safety Report 18619062 (Version 2)
Quarter: 2021Q2

REPORT INFORMATION
  Report Type: Spontaneous
  Country: US (occurrence: US)
  Receive Date: 20201215
  Receipt Date: 20210409
  Transmission Date: 20210717
  Serious: No
  Sender: FDA-Public Use
  Company Number: US-SA-2020SA358003

PATIENT
  Age: 47 Year
  Sex: Male

DRUGS (3)
  1. PREDNISONE. [Concomitant]
     Active Substance: PREDNISONE
  2. CORTIZONE [HYDROCORTISONE] [Concomitant]
     Active Substance: HYDROCORTISONE
  3. DUPIXENT [Suspect]
     Active Substance: DUPILUMAB
     Indication: DERMATITIS ATOPIC
     Dosage: 300 MG, QOW
     Route: 058
     Dates: start: 20200918

REACTIONS (4)
  - Skin laceration [Unknown]
  - Pruritus [Unknown]
  - Condition aggravated [Unknown]
  - Blister [Unknown]

NARRATIVE: CASE EVENT DATE: 2020
